FAERS Safety Report 9096055 (Version 1)
Quarter: 2013Q1

REPORT INFORMATION
  Report Type: Spontaneous
  Country: BR (occurrence: BR)
  Receive Date: 20130207
  Receipt Date: 20130207
  Transmission Date: 20140127
  Serious: Yes (Death)
  Sender: FDA-Public Use
  Company Number: BR-JNJFOC-20130202201

PATIENT
  Age: 44 Year
  Sex: Female

DRUGS (2)
  1. TYLEX [Suspect]
     Indication: PAIN
     Route: 048
     Dates: start: 201210, end: 20130202
  2. AMYTRIL [Concomitant]
     Indication: DEPRESSION
     Route: 065
     Dates: end: 20130202

REACTIONS (2)
  - Rectal cancer [Fatal]
  - Anaemia [Not Recovered/Not Resolved]
